FAERS Safety Report 7021529-6 (Version None)
Quarter: 2010Q3

REPORT INFORMATION
  Report Type: 
  Country: None (occurrence: None)
  Receive Date: 20100929
  Receipt Date: 20100922
  Transmission Date: 20110219
  Serious: Yes (Hospitalization, Other)
  Sender: FDA-Public Use
  Company Number: US-AMGEN-QUU435503

PATIENT
  Sex: Male

DRUGS (5)
  1. NPLATE [Suspect]
     Indication: IDIOPATHIC THROMBOCYTOPENIC PURPURA
     Dates: start: 20100622, end: 20100622
  2. FOLINIC ACID [Concomitant]
  3. OXALIPLATIN [Concomitant]
  4. FLUOROURACIL [Concomitant]
  5. AVASTIN [Concomitant]

REACTIONS (2)
  - DRUG INEFFECTIVE [None]
  - NEOPLASM MALIGNANT [None]
